FAERS Safety Report 21240365 (Version 2)
Quarter: 2023Q1

REPORT INFORMATION
  Report Type: Report from Study
  Country: CA (occurrence: CA)
  Receive Date: 20220822
  Receipt Date: 20230112
  Transmission Date: 20230417
  Serious: Yes (Other)
  Sender: FDA-Public Use
  Company Number: CA-BAUSCH-BL-2021-022113

PATIENT
  Age: 84 Year
  Sex: Male

DRUGS (9)
  1. SILIQ [Suspect]
     Active Substance: BRODALUMAB
     Indication: Psoriasis
     Dosage: 210 MG / 1.5 ML, WEEK 0, 1 AND 2
     Route: 058
     Dates: start: 20210426, end: 20210510
  2. SILIQ [Suspect]
     Active Substance: BRODALUMAB
     Dosage: 210 MG / 1.5 ML
     Route: 058
     Dates: start: 2021
  3. SILIQ [Suspect]
     Active Substance: BRODALUMAB
     Dosage: 210 MG / 1.5 ML, Q 2 WEEKS
     Route: 058
     Dates: start: 20220621
  4. SILIQ [Suspect]
     Active Substance: BRODALUMAB
     Dosage: 210 MG / 1.5 ML, Q 2 WEEKS
     Route: 058
     Dates: start: 20220719
  5. SILIQ [Suspect]
     Active Substance: BRODALUMAB
     Dosage: 210 MG / 1.5 ML, Q 2 WEEKS
     Route: 058
     Dates: start: 20220802
  6. SILIQ [Suspect]
     Active Substance: BRODALUMAB
     Dosage: 210 MG / 1.5 ML, Q 2 WEEKS
     Route: 058
     Dates: start: 20221220
  7. COVID-19 VACCINE NOS [Suspect]
     Active Substance: COVID-19 VACCINE NOS
     Indication: COVID-19 prophylaxis
     Dosage: THIRD DOSE
     Route: 065
     Dates: start: 202112, end: 202112
  8. IRBESARTAN [Concomitant]
     Active Substance: IRBESARTAN
     Indication: Product used for unknown indication
     Route: 048
  9. IRBESARTAN [Concomitant]
     Active Substance: IRBESARTAN
     Dosage: INCREASED TO 300 MG 1 TAB OD
     Route: 048

REACTIONS (18)
  - Blood pressure increased [Not Recovered/Not Resolved]
  - Conjunctivitis [Unknown]
  - Heart rate decreased [Unknown]
  - Oropharyngeal discomfort [Unknown]
  - Asthenia [Not Recovered/Not Resolved]
  - Skin atrophy [Not Recovered/Not Resolved]
  - Contusion [Not Recovered/Not Resolved]
  - Scratch [Not Recovered/Not Resolved]
  - Wound [Not Recovered/Not Resolved]
  - Erythema of eyelid [Unknown]
  - Skin fragility [Not Recovered/Not Resolved]
  - Condition aggravated [Not Recovered/Not Resolved]
  - Glossodynia [Not Recovered/Not Resolved]
  - Chest discomfort [Unknown]
  - Hyperaesthesia [Not Recovered/Not Resolved]
  - Confusional state [Unknown]
  - Incoherent [Unknown]
  - Fatigue [Not Recovered/Not Resolved]

NARRATIVE: CASE EVENT DATE: 20210101
